FAERS Safety Report 6928285-8 (Version None)
Quarter: 2010Q3

REPORT INFORMATION
  Report Type: 
  Country: None (occurrence: None)
  Receive Date: 20100810
  Receipt Date: 20100727
  Transmission Date: 20110219
  Serious: Yes (Other)
  Sender: FDA-Public Use
  Company Number: 7012683

PATIENT
  Age: 46 Year
  Sex: Female

DRUGS (6)
  1. REBIF [Suspect]
     Indication: MULTIPLE SCLEROSIS
     Dosage: 44 MCG, 3 IN 1 WK, SUBCUTANEOUS, 44 MCG, 3 IN 1 WK, SUBCUTANEOUS
     Route: 058
     Dates: start: 20070118, end: 20080101
  2. REBIF [Suspect]
     Indication: MULTIPLE SCLEROSIS
     Dosage: 44 MCG, 3 IN 1 WK, SUBCUTANEOUS, 44 MCG, 3 IN 1 WK, SUBCUTANEOUS
     Route: 058
     Dates: start: 20080101
  3. LOPRESSOR [Concomitant]
  4. BENADRYL [Concomitant]
  5. KLONOPIN [Concomitant]
  6. FLONASE [Concomitant]

REACTIONS (9)
  - CERVIX DISORDER [None]
  - DISEASE RECURRENCE [None]
  - FUNGAL INFECTION [None]
  - HOT FLUSH [None]
  - INJECTION SITE HAEMATOMA [None]
  - INJECTION SITE PAIN [None]
  - METRORRHAGIA [None]
  - UTERINE LEIOMYOMA [None]
  - VERTIGO POSITIONAL [None]
